FAERS Safety Report 4868519-7 (Version None)
Quarter: 2005Q4

REPORT INFORMATION
  Report Type: 
  Country: None (occurrence: None)
  Receive Date: 20051223
  Receipt Date: 20051215
  Transmission Date: 20060501
  Serious: Yes (Hospitalization, Other)
  Sender: FDA-Public Use
  Company Number: 2005169826

PATIENT
  Age: 62 Year
  Sex: Male

DRUGS (7)
  1. VIAGRA [Suspect]
     Indication: ERECTILE DYSFUNCTION
     Dosage: 100 MG (100 MG, 1 IN 1 AS NECESSARY), ORAL
     Route: 048
     Dates: start: 20020101, end: 20050101
  2. CARDURA [Concomitant]
  3. DILTIAZEM [Concomitant]
  4. URSODIOL [Concomitant]
  5. PREDNISONE [Concomitant]
  6. CELEBREX [Concomitant]
  7. THALOMID [Concomitant]

REACTIONS (3)
  - DRUG INEFFECTIVE [None]
  - LIVER ABSCESS [None]
  - PNEUMONIA [None]
